FAERS Safety Report 11151317 (Version 3)
Quarter: 2015Q3

REPORT INFORMATION
  Report Type: Spontaneous
  Country: US (occurrence: US)
  Receive Date: 20150601
  Receipt Date: 20150810
  Transmission Date: 20151125
  Serious: Yes (Life-Threatening, Hospitalization)
  Sender: FDA-Public Use
  Company Number: US-BAYER-2015-259308

PATIENT
  Age: 22 Year
  Sex: Female

DRUGS (1)
  1. MIRENA [Suspect]
     Active Substance: LEVONORGESTREL
     Indication: CONTRACEPTION
     Dosage: 20 MCG/24HR, CONT
     Route: 015
     Dates: start: 20090610, end: 201305

REACTIONS (14)
  - Pelvic pain [Recovered/Resolved]
  - Device issue [Recovered/Resolved]
  - Embedded device [Recovered/Resolved]
  - Abdominal pain lower [Recovered/Resolved]
  - Fear [None]
  - Pyrexia [None]
  - Infection [None]
  - Abdominal pain [Recovered/Resolved]
  - Device dislocation [Recovered/Resolved]
  - Chills [None]
  - Injury [Recovered/Resolved]
  - General physical health deterioration [Recovered/Resolved]
  - Anxiety [None]
  - Menstrual disorder [Recovered/Resolved]

NARRATIVE: CASE EVENT DATE: 200906
